FAERS Safety Report 24075217 (Version 1)
Quarter: 2024Q3

REPORT INFORMATION
  Report Type: Spontaneous
  Country: US (occurrence: US)
  Receive Date: 20240710
  Receipt Date: 20240710
  Transmission Date: 20241017
  Serious: Yes (Death, Life-Threatening, Other)
  Sender: DR REDDYS
  Company Number: US-DRL-USA-LIT/USA/24/0009824

PATIENT
  Age: 37 Year
  Sex: Male

DRUGS (4)
  1. CYCLOPHOSPHAMIDE [Suspect]
     Active Substance: CYCLOPHOSPHAMIDE
     Indication: Diffuse large B-cell lymphoma
  2. DOXORUBICIN [Suspect]
     Active Substance: DOXORUBICIN
     Indication: Diffuse large B-cell lymphoma
  3. PREDNISONE [Suspect]
     Active Substance: PREDNISONE
     Indication: Diffuse large B-cell lymphoma
  4. VINCRISTINE [Suspect]
     Active Substance: VINCRISTINE
     Indication: Diffuse large B-cell lymphoma

REACTIONS (7)
  - Bacteraemia [Fatal]
  - Pneumonia [Fatal]
  - Respiratory failure [Fatal]
  - Sepsis [Fatal]
  - Neutropenia [Unknown]
  - Drug intolerance [Unknown]
  - Product use in unapproved indication [Unknown]
